FAERS Safety Report 21771915 (Version 2)
Quarter: 2022Q4

REPORT INFORMATION
  Report Type: Report from Study
  Country: US (occurrence: US)
  Receive Date: 20221223
  Receipt Date: 20221226
  Transmission Date: 20230112
  Serious: No
  Sender: FDA-Public Use
  Company Number: US-ABBVIE-4243513

PATIENT
  Sex: Female

DRUGS (1)
  1. HUMIRA [Suspect]
     Active Substance: ADALIMUMAB
     Indication: Rheumatoid arthritis
     Dosage: ONSET DATE FOR THE EVENT ^NOT GETTING THE RESULTS THEY HAD HOPED FOR HUMIRA^ WAS 2022
     Route: 058
     Dates: start: 20220524

REACTIONS (3)
  - Injection site haemorrhage [Unknown]
  - Drug ineffective [Not Recovered/Not Resolved]
  - Incorrect dose administered [Unknown]
